FAERS Safety Report 12182641 (Version 1)
Quarter: 2016Q1

REPORT INFORMATION
  Report Type: Spontaneous
  Country: US (occurrence: None)
  Receive Date: 20160315
  Receipt Date: 20160315
  Transmission Date: 20160526
  Serious: Yes (Hospitalization)
  Sender: FDA-Public Use
  Company Number: None

PATIENT
  Age: 38 Year
  Sex: Female
  Weight: 70.7 kg

DRUGS (23)
  1. AMITRIPTYLINE [Concomitant]
     Active Substance: AMITRIPTYLINE
  2. BUSPIRONE [Concomitant]
     Active Substance: BUSPIRONE HYDROCHLORIDE
  3. GABAPENTIN. [Concomitant]
     Active Substance: GABAPENTIN
  4. TOPIRAMATE. [Concomitant]
     Active Substance: TOPIRAMATE
  5. ALPRAZOLAM. [Concomitant]
     Active Substance: ALPRAZOLAM
  6. ACYCLOVIR. [Concomitant]
     Active Substance: ACYCLOVIR
  7. SYMBICORT [Concomitant]
     Active Substance: BUDESONIDE\FORMOTEROL FUMARATE DIHYDRATE
  8. HYDROXYZINE [Concomitant]
     Active Substance: HYDROXYZINE\HYDROXYZINE HYDROCHLORIDE
  9. MONTELUKAST [Concomitant]
     Active Substance: MONTELUKAST SODIUM
  10. TRAZOLDONE [Concomitant]
  11. SUMATRIPTAN. [Concomitant]
     Active Substance: SUMATRIPTAN
  12. DALFAMPRIDINE [Concomitant]
     Active Substance: DALFAMPRIDINE
  13. FERROUS SULFATE [Concomitant]
     Active Substance: FERROUS SULFATE\FERROUS SULFATE, DRIED
  14. ELETRIPTAN [Concomitant]
     Active Substance: ELETRIPTAN
  15. SULFAMETHOXAZOLE-TRIMETHOPRIM [Concomitant]
     Active Substance: SULFAMETHOXAZOLE\TRIMETHOPRIM
  16. PROMETHAZINE [Concomitant]
     Active Substance: PROMETHAZINE\PROMETHAZINE HYDROCHLORIDE
  17. PANTOPRAZOLE [Concomitant]
     Active Substance: PANTOPRAZOLE SODIUM
  18. ALBUTEROL. [Concomitant]
     Active Substance: ALBUTEROL
  19. ALEMTUZUMAB [Suspect]
     Active Substance: ALEMTUZUMAB
     Indication: MULTIPLE SCLEROSIS
     Route: 042
     Dates: start: 20160307, end: 20160311
  20. CANDESARTAN [Concomitant]
     Active Substance: CANDESARTAN
  21. VITAMIN D [Concomitant]
     Active Substance: CHOLECALCIFEROL
  22. DULOXETINE. [Concomitant]
     Active Substance: DULOXETINE
  23. MODAFINIL. [Concomitant]
     Active Substance: MODAFINIL

REACTIONS (4)
  - Blood pressure increased [None]
  - Pulmonary alveolar haemorrhage [None]
  - Acute respiratory failure [None]
  - Cardiomyopathy [None]

NARRATIVE: CASE EVENT DATE: 20160311
